FAERS Safety Report 8977074 (Version 2)
Quarter: 2013Q1

REPORT INFORMATION
  Report Type: Spontaneous
  Country: FR (occurrence: FR)
  Receive Date: 20121220
  Receipt Date: 20130211
  Transmission Date: 20140127
  Serious: Yes (Hospitalization, Other)
  Sender: FDA-Public Use
  Company Number: FR-009507513-1212FRA003427

PATIENT
  Age: 44 Year
  Sex: Male

DRUGS (9)
  1. ISENTRESS [Suspect]
     Indication: HIV INFECTION
     Dosage: 800 MG, UNK
     Route: 048
     Dates: start: 20120726, end: 20120821
  2. FOSCAVIR [Suspect]
     Dosage: 18 G, QD
     Route: 042
     Dates: start: 20120727, end: 20120823
  3. CRIXIVAN [Concomitant]
     Dosage: UNK
  4. NORVIR [Concomitant]
     Dosage: UNK
  5. RETROVIR [Concomitant]
  6. EMTRIVA [Concomitant]
  7. TOPALGIC (SUPROFEN) [Concomitant]
  8. BACTRIM [Concomitant]
  9. FRAGMINE [Concomitant]

REACTIONS (1)
  - Renal failure acute [Recovered/Resolved]
